FAERS Safety Report 10039306 (Version 1)
Quarter: 2014Q1

REPORT INFORMATION
  Report Type: Spontaneous
  Country: US (occurrence: None)
  Receive Date: 20140318
  Receipt Date: 20140318
  Transmission Date: 20141002
  Serious: Yes (Other)
  Sender: FDA-Public Use
  Company Number: 2013CT000115

PATIENT
  Age: 43 Year
  Sex: Female
  Weight: 162.84 kg

DRUGS (8)
  1. KORLYM [Suspect]
     Indication: PITUITARY-DEPENDENT CUSHING^S SYNDROME
     Route: 048
     Dates: start: 201307
  2. INSULIN [Concomitant]
  3. SPIRONOLACTONE [Concomitant]
  4. LEVOTHYROXINE [Concomitant]
  5. LISINOPRIL [Concomitant]
  6. BUPROPION [Concomitant]
  7. VITAMIN D [Concomitant]
  8. LASIX [Concomitant]

REACTIONS (7)
  - Alopecia [None]
  - Weight increased [None]
  - Asthenia [None]
  - Decreased appetite [None]
  - Restless legs syndrome [None]
  - Insomnia [None]
  - Anxiety [None]
